FAERS Safety Report 26091031 (Version 1)
Quarter: 2025Q4

REPORT INFORMATION
  Report Type: Spontaneous
  Country: MY (occurrence: MY)
  Receive Date: 20251126
  Receipt Date: 20251126
  Transmission Date: 20260117
  Serious: Yes (Other)
  Sender: ROCHE
  Company Number: MY-002147023-NVSC2025MY179734

PATIENT
  Age: 68 Year
  Sex: Male

DRUGS (1)
  1. RANIBIZUMAB [Suspect]
     Active Substance: RANIBIZUMAB
     Indication: Diabetic retinal oedema
     Dosage: 0.3MG/0.03ML; OVER RIGHT EYE
     Route: 050

REACTIONS (2)
  - VIth nerve paralysis [Recovering/Resolving]
  - Diplopia [Recovering/Resolving]
